FAERS Safety Report 23843684 (Version 1)
Quarter: 2024Q2

REPORT INFORMATION
  Report Type: Spontaneous
  Country: US (occurrence: US)
  Receive Date: 20240510
  Receipt Date: 20240510
  Transmission Date: 20240715
  Serious: No
  Sender: FDA-Public Use
  Company Number: US-TEVA-VS-3182104

PATIENT
  Sex: Female

DRUGS (10)
  1. PENICILLIN [Suspect]
     Active Substance: PENICILLIN
     Indication: Product used for unknown indication
     Dosage: UNKNOWN
     Route: 065
  2. OMNICEF [Concomitant]
     Active Substance: CEFDINIR
  3. DOXYCYCLINE [Concomitant]
     Active Substance: DOXYCYCLINE
  4. DOXEPIN [Concomitant]
     Active Substance: DOXEPIN
  5. CODEINE [Concomitant]
     Active Substance: CODEINE
  6. PERCOCET [Concomitant]
     Active Substance: ACETAMINOPHEN\OXYCODONE HYDROCHLORIDE
  7. VICODIN [Concomitant]
     Active Substance: ACETAMINOPHEN\HYDROCODONE BITARTRATE
  8. DEXILANT [Concomitant]
     Active Substance: DEXLANSOPRAZOLE
  9. ASPIRIN [Concomitant]
     Active Substance: ASPIRIN
  10. SINGULAIR [Concomitant]
     Active Substance: MONTELUKAST SODIUM

REACTIONS (3)
  - Pruritus [Unknown]
  - Oral pruritus [Unknown]
  - Pruritus [Unknown]
